FAERS Safety Report 8997998 (Version 1)
Quarter: 2013Q1

REPORT INFORMATION
  Report Type: Spontaneous
  Country: US (occurrence: US)
  Receive Date: 20130104
  Receipt Date: 20130104
  Transmission Date: 20140127
  Serious: No
  Sender: FDA-Public Use
  Company Number: US-ASTRAZENECA-2012SE92975

PATIENT
  Age: 32 Year
  Sex: Male
  Weight: 102.1 kg

DRUGS (7)
  1. SYMBICORT [Suspect]
     Indication: EMPHYSEMA
     Dosage: UNKNOWN STRENGTH, 2 PUFFS BID
     Route: 055
     Dates: start: 20121207
  2. PRO-AIR [Concomitant]
     Indication: EMPHYSEMA
     Dosage: FOUR TIMES A DAY
     Route: 055
     Dates: start: 20121207
  3. COGENTIN [Concomitant]
     Indication: SCHIZOPHRENIA
     Dosage: AT NIGHT
     Route: 048
     Dates: start: 2012
  4. THORAZINE [Concomitant]
     Indication: SCHIZOPHRENIA
     Dosage: AT NIGHT
     Route: 048
  5. GEODON [Concomitant]
     Indication: SCHIZOPHRENIA
     Route: 048
     Dates: start: 2012
  6. CEFDINIR [Concomitant]
     Indication: SLEEP APNOEA SYNDROME
     Route: 048
  7. INVEGA [Concomitant]
     Indication: SCHIZOPHRENIA
     Dosage: EVERY 1-1/2 MONTHS
     Route: 050
     Dates: start: 2012

REACTIONS (11)
  - Dyspnoea [Unknown]
  - Chest discomfort [Unknown]
  - Paranoia [Unknown]
  - Terminal insomnia [Unknown]
  - Nasal congestion [Recovering/Resolving]
  - Respiratory tract congestion [Unknown]
  - Sleep apnoea syndrome [Recovering/Resolving]
  - Vomiting [Unknown]
  - Cough [Unknown]
  - Anxiety [Unknown]
  - Off label use [Unknown]
